FAERS Safety Report 5124077-3 (Version None)
Quarter: 2006Q4

REPORT INFORMATION
  Report Type: 
  Country: None (occurrence: None)
  Receive Date: 20061010
  Receipt Date: 20051103
  Transmission Date: 20070319
  Serious: No
  Sender: FDA-Public Use
  Company Number: US-BRISTOL-MYERS SQUIBB COMPANY-13167358

PATIENT
  Age: 73 Year
  Sex: Female
  Weight: 45 kg

DRUGS (3)
  1. AVAPRO [Suspect]
     Indication: HYPERTENSION
     Dates: start: 20050801
  2. AVAPRO [Suspect]
     Dates: start: 20050901
  3. ACIPHEX [Concomitant]

REACTIONS (8)
  - ABDOMINAL DISTENSION [None]
  - DEHYDRATION [None]
  - FLATULENCE [None]
  - GENITAL ERYTHEMA [None]
  - HOT FLUSH [None]
  - HYPOTENSION [None]
  - IRRITABILITY [None]
  - MUSCLE TIGHTNESS [None]
